FAERS Safety Report 13132167 (Version 1)
Quarter: 2017Q1

REPORT INFORMATION
  Report Type: Spontaneous
  Country: US (occurrence: US)
  Receive Date: 20170119
  Receipt Date: 20170119
  Transmission Date: 20170428
  Serious: No
  Sender: FDA-Public Use
  Company Number: US-TEVA-728819ACC

PATIENT
  Sex: Female

DRUGS (5)
  1. PRENATAL TAB [Concomitant]
  2. FISH OIL [Concomitant]
     Active Substance: FISH OIL
  3. VIT B12 TAB [Concomitant]
  4. COPAXONE [Suspect]
     Active Substance: GLATIRAMER ACETATE
     Indication: MULTIPLE SCLEROSIS
     Route: 058
     Dates: start: 20160928
  5. VIT D3 CAP [Concomitant]

REACTIONS (1)
  - Injection site reaction [Unknown]
